FAERS Safety Report 12921938 (Version 1)
Quarter: 2016Q4

REPORT INFORMATION
  Report Type: Spontaneous
  Country: US (occurrence: US)
  Receive Date: 20161108
  Receipt Date: 20161108
  Transmission Date: 20170207
  Serious: No
  Sender: FDA-Public Use
  Company Number: US-BAUSCH-BL-2016-010899

PATIENT
  Age: 70 Year
  Sex: Female
  Weight: 77.18 kg

DRUGS (3)
  1. ZIRGAN [Suspect]
     Active Substance: GANCICLOVIR
     Indication: HERPES ZOSTER
     Dosage: FOR EVERY THREE HOURS FOR 10 DAYS
     Route: 047
     Dates: start: 20160502
  2. FML [Suspect]
     Active Substance: FLUOROMETHOLONE
     Indication: HERPES ZOSTER
     Route: 047
  3. SYNTHROID [Concomitant]
     Active Substance: LEVOTHYROXINE SODIUM
     Indication: THYROID DISORDER
     Route: 048

REACTIONS (2)
  - Off label use [Recovered/Resolved]
  - Vision blurred [Unknown]

NARRATIVE: CASE EVENT DATE: 20160502
